FAERS Safety Report 8777933 (Version 1)
Quarter: 2012Q4

REPORT INFORMATION
  Report Type: 
  Country: ES (occurrence: ES)
  Receive Date: 20120912
  Receipt Date: 20120912
  Transmission Date: 20130627
  Serious: Yes (Other)
  Sender: FDA-Public Use
  Company Number: PHHY2012ES078519

PATIENT
  Age: 7 Year
  Sex: Male

DRUGS (5)
  1. TRILEPTAL [Suspect]
     Dosage: 12 ml, /12h
     Route: 048
     Dates: start: 2006
  2. VALPROIC ACID [Suspect]
     Dosage: 500 mg,/ 12 hrs
     Route: 048
     Dates: start: 2004
  3. SOMATROPIN [Suspect]
     Dosage: 0.3 mg, UNK
     Dates: start: 20120102
  4. VITAMIN D3 [Concomitant]
  5. MELATONINE [Concomitant]

REACTIONS (1)
  - Precocious puberty [Unknown]
